FAERS Safety Report 5189778-X (Version None)
Quarter: 2006Q4

REPORT INFORMATION
  Report Type: 
  Country: None (occurrence: None)
  Receive Date: 20061218
  Receipt Date: 20061214
  Transmission Date: 20070319
  Serious: Yes (Hospitalization, Disabling)
  Sender: FDA-Public Use
  Company Number: SU-2006-005653

PATIENT
  Age: 74 Year
  Sex: Male
  Weight: 87.0906 kg

DRUGS (6)
  1. BENICAR [Suspect]
     Indication: DRUG USE FOR UNKNOWN INDICATION
     Dosage: 20 MG QD PO
     Route: 048
     Dates: start: 20060101, end: 20060101
  2. LASIX [Concomitant]
  3. CELEBREX [Concomitant]
  4. POTASSIUM CHLORIDE [Concomitant]
  5. PLAQUENIL [Concomitant]
  6. COLBENEMID [Concomitant]

REACTIONS (2)
  - BLOOD CREATININE INCREASED [None]
  - BLOOD UREA INCREASED [None]
